FAERS Safety Report 6203136-8 (Version None)
Quarter: 2009Q2

REPORT INFORMATION
  Report Type: 
  Country: None (occurrence: None)
  Receive Date: 20090526
  Receipt Date: 20090526
  Transmission Date: 20091009
  Serious: Yes (Hospitalization, Other)
  Sender: FDA-Public Use
  Company Number: None

PATIENT
  Sex: Female
  Weight: 20.6 kg

DRUGS (1)
  1. GAMMAGARD [Suspect]
     Indication: KAWASAKI'S DISEASE
     Dosage: 41 GM X1 IV DRIP
     Route: 041
     Dates: start: 20090419, end: 20090419

REACTIONS (4)
  - HEADACHE [None]
  - NAUSEA [None]
  - PHOTOPHOBIA [None]
  - VOMITING [None]
